FAERS Safety Report 5356812-3 (Version None)
Quarter: 2007Q2

REPORT INFORMATION
  Report Type: 
  Country: None (occurrence: None)
  Receive Date: 20070614
  Receipt Date: 20070404
  Transmission Date: 20071010
  Serious: No
  Sender: FDA-Public Use
  Company Number: US-ASTRAZENECA-2007UW06720

PATIENT
  Age: 71 Year
  Sex: Female
  Weight: 74.8 kg

DRUGS (3)
  1. ATACAND [Suspect]
     Indication: HYPERTENSION
     Route: 048
  2. PROPRANOLOL [Suspect]
     Dosage: 1/4 TABLET OF 10 MG
     Route: 048
  3. BENADRYL [Concomitant]

REACTIONS (1)
  - AMNESIA [None]
